FAERS Safety Report 6852926-7 (Version None)
Quarter: 2010Q3

REPORT INFORMATION
  Report Type: 
  Country: None (occurrence: None)
  Receive Date: 20100717
  Receipt Date: 20071126
  Transmission Date: 20110219
  Serious: No
  Sender: FDA-Public Use
  Company Number: US-PFIZER INC-2007101374

PATIENT
  Sex: Female
  Weight: 73.5 kg

DRUGS (7)
  1. CHANTIX [Suspect]
     Indication: SMOKING CESSATION THERAPY
     Dates: start: 20071101
  2. ESTROGENS [Concomitant]
  3. TEGRETOL [Concomitant]
  4. LAMICTAL [Concomitant]
  5. SERTRALINE HCL [Concomitant]
  6. QUETIAPINE [Concomitant]
  7. WELLBUTRIN [Concomitant]
     Indication: BIPOLAR I DISORDER

REACTIONS (7)
  - HOT FLUSH [None]
  - HYPERCHLORHYDRIA [None]
  - HYPERHIDROSIS [None]
  - INSOMNIA [None]
  - NAUSEA [None]
  - PRODUCTIVE COUGH [None]
  - SINUSITIS [None]
